FAERS Safety Report 6161223-7 (Version None)
Quarter: 2009Q2

REPORT INFORMATION
  Report Type: 
  Country: None (occurrence: None)
  Receive Date: 20090421
  Receipt Date: 20090413
  Transmission Date: 20091009
  Serious: Yes (Death, Hospitalization, Other)
  Sender: FDA-Public Use
  Company Number: GR-BAXTER-2009BH005960

PATIENT
  Age: 72 Year
  Sex: Male

DRUGS (12)
  1. CYCLOPHOSPHAMIDE [Suspect]
     Indication: ANAEMIA HAEMOLYTIC AUTOIMMUNE
     Dosage: UNK MG, UNK
     Route: 065
  2. CYCLOPHOSPHAMIDE [Suspect]
     Indication: OFF LABEL USE
     Dosage: UNK MG, UNK
     Route: 065
  3. CYCLOPHOSPHAMIDE [Suspect]
     Dosage: UNK MG, UNK
     Route: 042
  4. CYCLOPHOSPHAMIDE [Suspect]
     Dosage: UNK MG, UNK
     Route: 042
  5. SUTENT [Suspect]
     Indication: GASTROINTESTINAL STROMAL TUMOUR
     Dosage: 50 MG, 1X/DAY
     Route: 065
     Dates: start: 20081020, end: 20081107
  6. GLEEVEC [Concomitant]
     Dosage: 400 MG, UNK
  7. LASIX [Concomitant]
     Route: 048
  8. GLUCOPHAGE [Concomitant]
     Route: 048
  9. SALOSPIR [Concomitant]
     Route: 048
  10. EZIPOL [Concomitant]
     Route: 048
  11. ATORVASTATIN [Concomitant]
     Route: 048
  12. ALLOPURINOL [Concomitant]
     Route: 048

REACTIONS (4)
  - ANGINA PECTORIS [None]
  - DEPRESSED LEVEL OF CONSCIOUSNESS [None]
  - DYSPNOEA [None]
  - FEBRILE NEUTROPENIA [None]
